FAERS Safety Report 9518571 (Version 1)
Quarter: 2013Q1

REPORT INFORMATION
  Report Type: Spontaneous
  Country: US (occurrence: None)
  Receive Date: 20130305
  Receipt Date: 20130305
  Transmission Date: 20140127
  Serious: Yes (Disabling)
  Sender: FDA-Public Use
  Company Number: 163-21880-11122170

PATIENT
  Age: 74 Year
  Sex: Male

DRUGS (7)
  1. REVLIMID [Suspect]
     Indication: PLASMA CELL MYELOMA
     Dosage: 15 MG, DAYS 1-21, PO
     Route: 048
     Dates: start: 201103
  2. SPIRONOLACTONE (SPIRONOLACTONE) [Concomitant]
  3. LISINOPRIL (LISINOPRIL) [Concomitant]
  4. FUROSEMIDE (FOROSEMIDE) [Concomitant]
  5. DOXEPIN (DOXEPIN) (DOXEPIN) [Concomitant]
  6. ZOLPIDEM TARTATE (ZOLPIDEM TARTRATE) [Concomitant]
  7. DEXAMETHASONE (DEXAMETHASONE) [Concomitant]

REACTIONS (2)
  - Contusion [None]
  - Dyspnoea [None]
